FAERS Safety Report 10040600 (Version 2)
Quarter: 2014Q2

REPORT INFORMATION
  Report Type: Spontaneous
  Country: US (occurrence: US)
  Receive Date: 20140327
  Receipt Date: 20140410
  Transmission Date: 20141212
  Serious: Yes (Death)
  Sender: FDA-Public Use
  Company Number: US-AMGEN-USASP2014020718

PATIENT
  Age: 84 Year
  Sex: Female
  Weight: 7.48 kg

DRUGS (1)
  1. PROLIA [Suspect]
     Indication: OSTEOPOROSIS
     Dosage: 40 MG, ONCE
     Route: 058
     Dates: start: 20101012

REACTIONS (1)
  - Cardiac failure congestive [Fatal]
